FAERS Safety Report 7456929-3 (Version None)
Quarter: 2011Q2

REPORT INFORMATION
  Report Type: 
  Country: None (occurrence: None)
  Receive Date: 20110504
  Receipt Date: 20110421
  Transmission Date: 20111010
  Serious: Yes (Death)
  Sender: FDA-Public Use
  Company Number: JP-CELGENEUS-087-50794-11042754

PATIENT

DRUGS (1)
  1. VIDAZA [Suspect]
     Dosage: 65 MILLIGRAM/SQ. METER
     Route: 065

REACTIONS (1)
  - WHITE BLOOD CELL COUNT INCREASED [None]
